FAERS Safety Report 18884133 (Version 1)
Quarter: 2021Q1

REPORT INFORMATION
  Report Type: Spontaneous
  Country: TR (occurrence: TR)
  Receive Date: 20210212
  Receipt Date: 20210212
  Transmission Date: 20210420
  Serious: Yes (Hospitalization)
  Sender: FDA-Public Use
  Company Number: TR-SCIEGEN-2021SCILIT00106

PATIENT
  Age: 52 Year
  Sex: Female

DRUGS (5)
  1. PALMITATE [Interacting]
     Active Substance: RETINOL
     Indication: OEDEMA PERIPHERAL
     Route: 065
  2. QUETIAPINE. [Suspect]
     Active Substance: QUETIAPINE
     Indication: BIPOLAR DISORDER
     Route: 065
  3. PALIPERIDONE. [Interacting]
     Active Substance: PALIPERIDONE
     Indication: OEDEMA PERIPHERAL
     Route: 065
  4. QUETIAPINE. [Suspect]
     Active Substance: QUETIAPINE
     Route: 065
  5. QUETIAPINE. [Suspect]
     Active Substance: QUETIAPINE
     Route: 065

REACTIONS (1)
  - Oedema peripheral [Recovered/Resolved]
